FAERS Safety Report 9432293 (Version 1)
Quarter: 2013Q3

REPORT INFORMATION
  Report Type: Spontaneous
  Country: US (occurrence: None)
  Receive Date: 20130730
  Receipt Date: 20130730
  Transmission Date: 20140515
  Serious: No
  Sender: FDA-Public Use
  Company Number: None

PATIENT
  Age: 60 Year
  Sex: Female

DRUGS (1)
  1. TUBURCHLIN PPD [Suspect]
     Dosage: 0.1 TU, XT, INTRADERMAL
     Route: 023

REACTIONS (1)
  - Pruritus [None]
